FAERS Safety Report 7820365-8 (Version None)
Quarter: 2011Q4

REPORT INFORMATION
  Report Type: 
  Country: None (occurrence: None)
  Receive Date: 20111018
  Receipt Date: 20111014
  Transmission Date: 20120403
  Serious: Yes (Hospitalization)
  Sender: FDA-Public Use
  Company Number: CA-ROCHE-1004656

PATIENT
  Sex: Male
  Weight: 70 kg

DRUGS (9)
  1. CELEBREX [Concomitant]
  2. VITAMIN D [Concomitant]
  3. FOLIC ACID [Concomitant]
  4. ACTEMRA [Suspect]
     Dates: start: 20110412
  5. METHOTREXATE [Concomitant]
  6. PANTOPRAZOLE SODIUM [Concomitant]
  7. ACTEMRA [Suspect]
     Indication: RHEUMATOID ARTHRITIS
     Route: 042
     Dates: start: 20101002, end: 20110928
  8. CALCIUM CARBONATE [Concomitant]
  9. FLOMAX [Concomitant]

REACTIONS (3)
  - PNEUMOTHORAX [None]
  - IMMUNODEFICIENCY [None]
  - PNEUMONIA [None]
